FAERS Safety Report 16388538 (Version 1)
Quarter: 2019Q2

REPORT INFORMATION
  Report Type: Report from Study
  Country: US (occurrence: US)
  Receive Date: 20190604
  Receipt Date: 20190604
  Transmission Date: 20190711
  Serious: Yes (Other)
  Sender: FDA-Public Use
  Company Number: US-AUROBINDO-AUR-APL-2019-030403

PATIENT

DRUGS (1)
  1. BUPIVACAINE HYDROCHLORIDE. [Suspect]
     Active Substance: BUPIVACAINE HYDROCHLORIDE
     Indication: ANAESTHESIA
     Dosage: 1.28 MILLIGRAM/KILOGRAM VIA INFRACLAVICULAR BLOCK
     Route: 040

REACTIONS (2)
  - Seizure [Unknown]
  - Local anaesthetic systemic toxicity [Unknown]
